FAERS Safety Report 6829918-7 (Version None)
Quarter: 2010Q3

REPORT INFORMATION
  Report Type: 
  Country: None (occurrence: None)
  Receive Date: 20100711
  Receipt Date: 20100401
  Transmission Date: 20110219
  Serious: No
  Sender: FDA-Public Use
  Company Number: US-ALLERGAN-1004350US

PATIENT
  Age: 62 Year
  Sex: Female

DRUGS (5)
  1. LATISSE [Suspect]
     Indication: GROWTH OF EYELASHES
     Dosage: 1 GTT, QHS
  2. SYSTANE [Concomitant]
     Dosage: UNK
  3. OPTI FREE [Concomitant]
     Dosage: UNK
  4. COMBINATIONS OF VITAMINS [Concomitant]
  5. FOSAMAX [Concomitant]
     Indication: BONE DENSITY DECREASED
     Dosage: UNK

REACTIONS (3)
  - DRY SKIN [None]
  - ERYTHEMA OF EYELID [None]
  - EYELIDS PRURITUS [None]
